FAERS Safety Report 7038491-2 (Version None)
Quarter: 2010Q4

REPORT INFORMATION
  Report Type: 
  Country: None (occurrence: None)
  Receive Date: 20101011
  Receipt Date: 20100325
  Transmission Date: 20110411
  Serious: Yes (Other)
  Sender: FDA-Public Use
  Company Number: US-PFIZER INC-2010038924

PATIENT
  Sex: Female

DRUGS (2)
  1. NEURONTIN [Suspect]
     Dosage: UNK
  2. TRAMADOL [Suspect]
     Dosage: UNK

REACTIONS (4)
  - AGITATION [None]
  - COORDINATION ABNORMAL [None]
  - DYSKINESIA [None]
  - INSOMNIA [None]
